FAERS Safety Report 9237051 (Version 3)
Quarter: 2013Q4

REPORT INFORMATION
  Report Type: Spontaneous
  Country: US (occurrence: US)
  Receive Date: 20130417
  Receipt Date: 20131004
  Transmission Date: 20140711
  Serious: Yes (Death)
  Sender: FDA-Public Use
  Company Number: US-BRISTOL-MYERS SQUIBB COMPANY-18766121

PATIENT
  Age: 68 Year
  Sex: Male
  Weight: 117.91 kg

DRUGS (8)
  1. BYETTA [Suspect]
     Indication: TYPE 2 DIABETES MELLITUS
     Dosage: THERAPY UNTIL 27NOV08,JAN11?24JUN08-20JUL08:5MCG/2/1/DAY?24JUN08-27AUG08:10MCG/2/1/DAY
     Dates: start: 20080624, end: 20081127
  2. VICTOZA [Suspect]
     Indication: TYPE 2 DIABETES MELLITUS
     Dosage: THERAPY ON 18OCT10,JAN11?13OCT10-13NOV10:18MG/1/DAY
     Dates: start: 20101013, end: 201101
  3. LISINOPRIL [Concomitant]
     Route: 048
  4. ALLOPURINOL [Concomitant]
     Route: 048
  5. METAXALONE [Concomitant]
     Route: 048
  6. LANTUS [Concomitant]
     Indication: DIABETES MELLITUS
     Dosage: 1DF-20 UNITS
     Route: 058
  7. GLYBURIDE [Concomitant]
     Indication: DIABETES MELLITUS
  8. HUMALOG [Concomitant]
     Indication: DIABETES MELLITUS

REACTIONS (1)
  - Adenocarcinoma pancreas [Fatal]
